FAERS Safety Report 8142382-3 (Version None)
Quarter: 2012Q1

REPORT INFORMATION
  Report Type: 
  Country: None (occurrence: None)
  Receive Date: 20120216
  Receipt Date: 20120209
  Transmission Date: 20120608
  Serious: Yes (Hospitalization, Disabling, Other)
  Sender: FDA-Public Use
  Company Number: PHEH2010US00463

PATIENT
  Sex: Male
  Weight: 80.272 kg

DRUGS (31)
  1. WARFARIN SODIUM [Concomitant]
  2. SUTENT [Concomitant]
  3. KYOLIC [Concomitant]
  4. LIPITOR [Concomitant]
  5. PROCARDIA [Concomitant]
  6. LEVAQUIN [Concomitant]
  7. FENTANYL [Concomitant]
  8. ASPIRIN [Concomitant]
  9. LEVOTHYROXINE SODIUM [Concomitant]
  10. BENEFIBER [Concomitant]
  11. CATAPRES [Concomitant]
  12. ALLOPURINOL [Concomitant]
  13. SYNTHROID [Concomitant]
  14. ACTOS [Concomitant]
  15. ASPIRIN [Concomitant]
  16. MODURETIC 5-50 [Concomitant]
  17. CELEBREX [Concomitant]
  18. DURAGESIC-100 [Concomitant]
  19. MEGACE [Concomitant]
  20. VITAMIN D [Concomitant]
  21. IBUPROFEN [Concomitant]
  22. LISINOPRIL [Concomitant]
  23. PROTONIX [Concomitant]
  24. ZOMETA [Suspect]
     Dosage: UNK UKN, QW4
     Dates: start: 20040106, end: 20070319
  25. MULTI-VITAMINS [Concomitant]
  26. NEXAVAR [Concomitant]
  27. ZESTRIL [Concomitant]
  28. SPORANOX [Concomitant]
  29. LAMISIL [Concomitant]
  30. LIPITOR [Concomitant]
  31. EXELON [Concomitant]

REACTIONS (41)
  - ANXIETY [None]
  - SOFT TISSUE MASS [None]
  - OCULAR ICTERUS [None]
  - RENAL FAILURE CHRONIC [None]
  - CHOLELITHIASIS [None]
  - HYPOTHYROIDISM [None]
  - OSTEONECROSIS OF JAW [None]
  - PAIN [None]
  - ARTERIOSCLEROSIS [None]
  - GASTROINTESTINAL HAEMORRHAGE [None]
  - RASH [None]
  - ABDOMINAL PAIN [None]
  - OSTEOARTHRITIS [None]
  - BONE LESION [None]
  - PELVIC PAIN [None]
  - JOINT SWELLING [None]
  - INJURY [None]
  - DIVERTICULUM [None]
  - HAEMATOCHEZIA [None]
  - HAEMATURIA [None]
  - APHASIA [None]
  - CELLULITIS [None]
  - PNEUMONIA [None]
  - JOINT STIFFNESS [None]
  - SKIN LESION [None]
  - HYPONATRAEMIA [None]
  - PHYSICAL DISABILITY [None]
  - LYMPHADENOPATHY [None]
  - PATHOLOGICAL FRACTURE [None]
  - TOOTH LOSS [None]
  - HAEMATEMESIS [None]
  - RESPIRATORY FAILURE [None]
  - CORONARY ARTERY DISEASE [None]
  - ANAEMIA [None]
  - HAEMORRHAGE [None]
  - QUALITY OF LIFE DECREASED [None]
  - EXPOSED BONE IN JAW [None]
  - PROSTATE CANCER [None]
  - PROTEINURIA [None]
  - SKIN CANCER [None]
  - FEMUR FRACTURE [None]
